FAERS Safety Report 8228008-9 (Version None)
Quarter: 2012Q1

REPORT INFORMATION
  Report Type: 
  Country: None (occurrence: None)
  Receive Date: 20120322
  Receipt Date: 20120125
  Transmission Date: 20120608
  Serious: No
  Sender: FDA-Public Use
  Company Number: US-BRISTOL-MYERS SQUIBB COMPANY-16367765

PATIENT
  Age: 72 Year
  Sex: Female
  Weight: 52 kg

DRUGS (6)
  1. CELEXA [Concomitant]
  2. ZOCOR [Concomitant]
  3. ERBITUX [Suspect]
     Indication: NEOPLASM MALIGNANT
     Dosage: LAST TREATMENT:12JAN2012
  4. TOPROL-XL [Concomitant]
  5. PLAVIX [Concomitant]
  6. XANAX [Concomitant]

REACTIONS (3)
  - MOUTH ULCERATION [None]
  - WEIGHT DECREASED [None]
  - RASH MACULAR [None]
